FAERS Safety Report 22243332 (Version 1)
Quarter: 2023Q2

REPORT INFORMATION
  Report Type: Spontaneous
  Country: HR (occurrence: HR)
  Receive Date: 20230424
  Receipt Date: 20230424
  Transmission Date: 20230722
  Serious: Yes (Other)
  Sender: FDA-Public Use
  Company Number: HR-STRIDES ARCOLAB LIMITED-2023SP005772

PATIENT
  Age: 63 Year
  Sex: Male

DRUGS (2)
  1. ALBENDAZOLE [Suspect]
     Active Substance: ALBENDAZOLE
     Indication: Hepatic echinococciasis
     Dosage: 400 MILLIGRAM, BID (TWICE PER DAY) AND CONTINUED TILL FEB 2019
     Route: 065
     Dates: end: 201902
  2. ALBENDAZOLE [Suspect]
     Active Substance: ALBENDAZOLE
     Dosage: UNK, RE-INITIATED
     Route: 065

REACTIONS (3)
  - Pancytopenia [Unknown]
  - Hepatotoxicity [Unknown]
  - Drug intolerance [Unknown]

NARRATIVE: CASE EVENT DATE: 20190101
